FAERS Safety Report 13131745 (Version 2)
Quarter: 2017Q1

REPORT INFORMATION
  Report Type: Spontaneous
  Country: US (occurrence: US)
  Receive Date: 20170119
  Receipt Date: 20170202
  Transmission Date: 20170428
  Serious: Yes (Other)
  Sender: FDA-Public Use
  Company Number: US-SAOL THERAPEUTICS-2016SAO01270

PATIENT
  Age: 29 Year
  Sex: Male

DRUGS (3)
  1. LIORESAL [Suspect]
     Active Substance: BACLOFEN
     Indication: MUSCLE SPASTICITY
     Dosage: 273.5 ?G, \DAY
     Route: 037
     Dates: start: 20160613
  2. GABLOFEN [Suspect]
     Active Substance: BACLOFEN
     Dosage: 673.5 ?G, \DAY
     Route: 037
     Dates: start: 20160902
  3. LIORESAL [Suspect]
     Active Substance: BACLOFEN
     Indication: CEREBRAL PALSY
     Dosage: 673.5 ?G, \DAY

REACTIONS (3)
  - Drug withdrawal syndrome [Not Recovered/Not Resolved]
  - Device failure [Not Recovered/Not Resolved]
  - Tremor [Not Recovered/Not Resolved]

NARRATIVE: CASE EVENT DATE: 20161213
